FAERS Safety Report 25918282 (Version 2)
Quarter: 2025Q4

REPORT INFORMATION
  Report Type: Report from Study
  Country: EU (occurrence: EU)
  Receive Date: 20251014
  Receipt Date: 20251120
  Transmission Date: 20260117
  Serious: Yes (Hospitalization)
  Sender: DAIICHI
  Company Number: EU-DSJP-DS-2025-169133-IT

PATIENT
  Age: 78 Year
  Sex: Male

DRUGS (8)
  1. ENHERTU [Suspect]
     Active Substance: FAM-TRASTUZUMAB DERUXTECAN-NXKI
     Indication: HER2 low breast cancer
     Dosage: UNK
     Route: 042
  2. ENHERTU [Suspect]
     Active Substance: FAM-TRASTUZUMAB DERUXTECAN-NXKI
     Indication: Breast cancer metastatic
  3. PACLITAXEL [Suspect]
     Active Substance: PACLITAXEL
     Indication: Chemotherapy
     Dosage: UNK
     Route: 065
     Dates: start: 20250620, end: 20251020
  4. RAMUCIRUMAB [Suspect]
     Active Substance: RAMUCIRUMAB
     Indication: Chemotherapy
     Dosage: UNK
     Route: 065
     Dates: start: 20250620, end: 20251020
  5. TELMISARTAN [Concomitant]
     Active Substance: TELMISARTAN
     Indication: Hypertension
     Dosage: 40 MG DAILY
     Route: 048
  6. NYSTATIN [Concomitant]
     Active Substance: NYSTATIN
     Indication: Blood cholesterol decreased
     Dosage: DAILY
     Route: 048
  7. ENOXAPARIN [Concomitant]
     Active Substance: ENOXAPARIN
     Indication: Anticoagulant therapy
     Dosage: 4000 IU, QD
     Route: 048
  8. PERCOCET [Concomitant]
     Active Substance: ACETAMINOPHEN\OXYCODONE HYDROCHLORIDE
     Indication: Pain
     Dosage: UNK
     Route: 048

REACTIONS (1)
  - Oesophagobronchial fistula [Recovered/Resolved]

NARRATIVE: CASE EVENT DATE: 20250820
